FAERS Safety Report 15991897 (Version 3)
Quarter: 2019Q2

REPORT INFORMATION
  Report Type: Spontaneous
  Country: US (occurrence: US)
  Receive Date: 20190221
  Receipt Date: 20190612
  Transmission Date: 20190711
  Serious: No
  Sender: FDA-Public Use
  Company Number: US-PFIZER INC-2019068478

PATIENT
  Age: 76 Year
  Sex: Female
  Weight: 70 kg

DRUGS (1)
  1. PREMARIN [Suspect]
     Active Substance: ESTROGENS, CONJUGATED
     Indication: URINARY TRACT INFECTION
     Dosage: 2 G, 2X/WEEK (2G ON TUESDAY AND SATURDAY)
     Route: 067
     Dates: start: 2018

REACTIONS (5)
  - Drug effective for unapproved indication [Unknown]
  - Intentional product use issue [Unknown]
  - Nasopharyngitis [Not Recovered/Not Resolved]
  - Off label use [Unknown]
  - Body height decreased [Unknown]

NARRATIVE: CASE EVENT DATE: 2018
